FAERS Safety Report 12439457 (Version 1)
Quarter: 2016Q2

REPORT INFORMATION
  Report Type: Spontaneous
  Country: IT (occurrence: IT)
  Receive Date: 20160606
  Receipt Date: 20160606
  Transmission Date: 20160815
  Serious: Yes (Hospitalization)
  Sender: FDA-Public Use
  Company Number: IT-PFIZER INC-2016282488

PATIENT
  Age: 71 Year
  Sex: Female

DRUGS (7)
  1. NORAPRIL [Concomitant]
  2. CARDIOASPIRIN [Concomitant]
     Active Substance: ASPIRIN
     Route: 048
  3. EPSOCLAR [Suspect]
     Active Substance: HEPARIN SODIUM
     Indication: DEVICE OCCLUSION
     Dosage: 2 DF, TOTAL
     Route: 042
     Dates: start: 20160420, end: 20160420
  4. PANTOPRAZOLE [Concomitant]
     Active Substance: PANTOPRAZOLE SODIUM
     Route: 048
  5. CALCIUM [Concomitant]
     Active Substance: CALCIUM
     Route: 048
  6. KCL RETARD ZYMA [Concomitant]
     Active Substance: POTASSIUM CHLORIDE
     Route: 048
  7. TACHIDOL [Concomitant]
     Active Substance: ACETAMINOPHEN\CODEINE PHOSPHATE
     Route: 048

REACTIONS (2)
  - Medication error [Unknown]
  - Toxicity to various agents [Unknown]

NARRATIVE: CASE EVENT DATE: 20160420
